FAERS Safety Report 19676386 (Version 2)
Quarter: 2021Q3

REPORT INFORMATION
  Report Type: Report from Study
  Country: US (occurrence: US)
  Receive Date: 20210809
  Receipt Date: 20210818
  Transmission Date: 20211014
  Serious: No
  Sender: FDA-Public Use
  Company Number: NVSC2021US179304

PATIENT
  Age: 61 Year
  Sex: Female

DRUGS (3)
  1. MAYZENT [Suspect]
     Active Substance: SIPONIMOD
     Indication: MULTIPLE SCLEROSIS RELAPSE
     Dosage: 2 MG, QD
     Route: 048
     Dates: start: 20210801
  2. MAYZENT [Suspect]
     Active Substance: SIPONIMOD
     Indication: CLINICALLY ISOLATED SYNDROME
  3. MAYZENT [Suspect]
     Active Substance: SIPONIMOD
     Indication: RELAPSING-REMITTING MULTIPLE SCLEROSIS

REACTIONS (5)
  - Headache [Unknown]
  - Somnolence [Unknown]
  - Fatigue [Unknown]
  - Hypoaesthesia [Unknown]
  - Vision blurred [Unknown]

NARRATIVE: CASE EVENT DATE: 20210801
